FAERS Safety Report 9494038 (Version 4)
Quarter: 2014Q1

REPORT INFORMATION
  Report Type: Spontaneous
  Country: AU (occurrence: None)
  Receive Date: 20130827
  Receipt Date: 20140212
  Transmission Date: 20141002
  Serious: Yes (Hospitalization, Other)
  Sender: FDA-Public Use
  Company Number: ADR-2013-01478

PATIENT
  Age: 39 Year
  Sex: Male

DRUGS (1)
  1. LIORESAL [Suspect]
     Indication: MUSCLE SPASTICITY
     Dosage: 40.06 MCG/DAY

REACTIONS (7)
  - Nervous system disorder [None]
  - Device related infection [None]
  - Aspergillus infection [None]
  - Cauda equina syndrome [None]
  - Radiculopathy [None]
  - Neurological decompensation [None]
  - Wheelchair user [None]
